FAERS Safety Report 9858222 (Version 1)
Quarter: 2014Q1

REPORT INFORMATION
  Report Type: Spontaneous
  Country: US (occurrence: None)
  Receive Date: 20140129
  Receipt Date: 20140129
  Transmission Date: 20141002
  Serious: No
  Sender: FDA-Public Use
  Company Number: None

PATIENT
  Age: 62 Year
  Sex: Female

DRUGS (7)
  1. FORTEO 600 MCG/2.4 ML LILLY [Suspect]
     Route: 058
     Dates: start: 20130913
  2. OMEPRAZOLE [Concomitant]
  3. GABAPENTIN [Concomitant]
  4. LEVOTHYROXINE [Concomitant]
  5. CITALOPRAM [Concomitant]
  6. HYDROCODONE-APAP [Concomitant]
  7. FENTANYL [Concomitant]

REACTIONS (3)
  - Pain in extremity [None]
  - Skin discolouration [None]
  - Nail discolouration [None]
